FAERS Safety Report 13647480 (Version 2)
Quarter: 2017Q2

REPORT INFORMATION
  Report Type: Spontaneous
  Country: AT (occurrence: AT)
  Receive Date: 20170613
  Receipt Date: 20170620
  Transmission Date: 20170830
  Serious: Yes (Death, Other)
  Sender: FDA-Public Use
  Company Number: AT-INCYTE CORPORATION-2017IN004472

PATIENT

DRUGS (2)
  1. JAKAVI [Suspect]
     Active Substance: RUXOLITINIB
     Indication: MYELOFIBROSIS
     Dosage: 15 MG, BID
     Route: 065
     Dates: start: 201605
  2. JAKAVI [Suspect]
     Active Substance: RUXOLITINIB
     Dosage: 10 MG, BID
     Route: 065

REACTIONS (7)
  - Pain [Unknown]
  - Constipation [Unknown]
  - Colorectal cancer [Fatal]
  - Adenocarcinoma [Unknown]
  - Second primary malignancy [Fatal]
  - Metastases to liver [Unknown]
  - Metastasis [Unknown]

NARRATIVE: CASE EVENT DATE: 201701
